FAERS Safety Report 5587438-4 (Version None)
Quarter: 2008Q1

REPORT INFORMATION
  Report Type: 
  Country: None (occurrence: None)
  Receive Date: 20080110
  Receipt Date: 20080107
  Transmission Date: 20080703
  Serious: Yes (Congenital Anomaly, Other)
  Sender: FDA-Public Use
  Company Number: US-BOEHRINGER INGELHEIM PHARMACEUTICALS, INC.-2007-BP-22077BP

PATIENT
  Sex: Female
  Weight: 1 kg

DRUGS (4)
  1. VIRAMUNE [Suspect]
     Indication: HIV INFECTION
     Route: 064
     Dates: start: 20061001
  2. EPZICOM [Suspect]
     Indication: HIV INFECTION
     Route: 064
     Dates: start: 20061001
  3. LOTREL [Suspect]
     Route: 064
     Dates: end: 20070619
  4. PROCARDIA XL [Suspect]
     Route: 064
     Dates: start: 20070619

REACTIONS (3)
  - CONGENITAL HAND MALFORMATION [None]
  - PREMATURE BABY [None]
  - SMALL FOR DATES BABY [None]
